FAERS Safety Report 12357338 (Version 1)
Quarter: 2016Q2

REPORT INFORMATION
  Report Type: Spontaneous
  Country: US (occurrence: US)
  Receive Date: 20160511
  Receipt Date: 20160511
  Transmission Date: 20160815
  Serious: Yes (Hospitalization)
  Sender: FDA-Public Use
  Company Number: US-BIOGEN-2016BI00235407

PATIENT
  Sex: Female

DRUGS (1)
  1. AVONEX [Suspect]
     Active Substance: INTERFERON BETA-1A
     Indication: MULTIPLE SCLEROSIS
     Route: 030
     Dates: start: 19990815, end: 20160331

REACTIONS (7)
  - Mobility decreased [Not Recovered/Not Resolved]
  - Injection site pain [Recovered/Resolved]
  - Influenza like illness [Recovered/Resolved]
  - Tremor [Recovered/Resolved]
  - Back pain [Not Recovered/Not Resolved]
  - Road traffic accident [Recovered/Resolved]
  - Tearfulness [Recovered/Resolved]
